FAERS Safety Report 7121279-1 (Version None)
Quarter: 2010Q4

REPORT INFORMATION
  Report Type: 
  Country: None (occurrence: None)
  Receive Date: 20101124
  Receipt Date: 20101112
  Transmission Date: 20110411
  Serious: Yes (Death, Life-Threatening)
  Sender: FDA-Public Use
  Company Number: BE-SANOFI-AVENTIS-2010SA069969

PATIENT
  Age: 33 Year
  Sex: Female

DRUGS (7)
  1. PROPOFOL [Interacting]
     Indication: SEDATION
     Route: 065
  2. PROPOFOL [Interacting]
     Indication: MECHANICAL VENTILATION
     Route: 065
  3. COLCHICINE [Interacting]
     Route: 048
  4. ATORVASTATIN [Interacting]
     Route: 048
  5. IBUPROFEN [Interacting]
     Route: 065
  6. DICLOFENAC [Interacting]
     Route: 065
  7. FUROSEMIDE [Suspect]
     Route: 065

REACTIONS (6)
  - DRUG INTERACTION [None]
  - HYPERTRIGLYCERIDAEMIA [None]
  - MULTI-ORGAN FAILURE [None]
  - MULTIPLE DRUG OVERDOSE [None]
  - MUSCLE INJURY [None]
  - PROPOFOL INFUSION SYNDROME [None]
